FAERS Safety Report 22018117 (Version 7)
Quarter: 2024Q1

REPORT INFORMATION
  Report Type: Spontaneous
  Country: US (occurrence: US)
  Receive Date: 20230221
  Receipt Date: 20240220
  Transmission Date: 20240410
  Serious: Yes (Other)
  Sender: FDA-Public Use
  Company Number: US-PFIZER INC-PV202300018276

PATIENT
  Age: 76 Year
  Sex: Female
  Weight: 55.6 kg

DRUGS (5)
  1. IBRANCE [Suspect]
     Active Substance: PALBOCICLIB
     Indication: Breast cancer metastatic
     Dosage: 125 MG, 1X/DAY
     Route: 048
     Dates: start: 20230119
  2. IBRANCE [Suspect]
     Active Substance: PALBOCICLIB
     Dosage: 125 MG, CYCLIC AT 1 TABLET (125 MG TOTAL) DAILY FOR 21 DAYS, AND THEN OFF FOR 7 DAYS
     Route: 048
     Dates: start: 20230802
  3. ANASTROZOLE [Concomitant]
     Active Substance: ANASTROZOLE
     Indication: Breast cancer metastatic
     Dosage: 1 MG
     Dates: start: 20230118
  4. XGEVA [Concomitant]
     Active Substance: DENOSUMAB
     Indication: Metastases to bone
     Dosage: UNK, MONTHLY (Q4W)
  5. ARIMIDEX [Concomitant]
     Active Substance: ANASTROZOLE
     Indication: Breast cancer metastatic
     Dosage: UNK

REACTIONS (6)
  - Neutropenia [Unknown]
  - Limb injury [Unknown]
  - Asthenia [Unknown]
  - Gait disturbance [Unknown]
  - Macrocytosis [Unknown]
  - Neoplasm progression [Unknown]
